FAERS Safety Report 26122492 (Version 1)
Quarter: 2025Q4

REPORT INFORMATION
  Report Type: Spontaneous
  Country: EU (occurrence: EU)
  Receive Date: 20251204
  Receipt Date: 20251204
  Transmission Date: 20260117
  Serious: Yes (Death)
  Sender: FRESENIUS KABI
  Company Number: None

PATIENT
  Age: 67 Year
  Sex: Male
  Weight: 55 kg

DRUGS (3)
  1. TOCILIZUMAB [Suspect]
     Active Substance: TOCILIZUMAB
     Indication: Cytokine release syndrome
     Dosage: 424 MG (CALCULATED FOR 53 KG) URGENT SINGLE DOSE
     Route: 042
     Dates: start: 20251111, end: 20251111
  2. EPCORITAMAB [Suspect]
     Active Substance: EPCORITAMAB
     Indication: Lymphoma
     Dosage: 0.16 MG - FIRST ESCALATION DOSE?FOA: CONCENTRATE FOR SOLUTION FOR INJECTION
     Route: 058
     Dates: start: 20251110
  3. DEXAMETHASONE [Suspect]
     Active Substance: DEXAMETHASONE
     Indication: Cytokine release syndrome
     Dosage: 10 MG/6H
     Route: 042
     Dates: start: 20251111, end: 20251112

REACTIONS (1)
  - Pneumonia pseudomonal [Fatal]

NARRATIVE: CASE EVENT DATE: 20251111
